FAERS Safety Report 7805225-0 (Version None)
Quarter: 2011Q4

REPORT INFORMATION
  Report Type: 
  Country: None (occurrence: None)
  Receive Date: 20111010
  Receipt Date: 20111003
  Transmission Date: 20120403
  Serious: Yes (Other)
  Sender: FDA-Public Use
  Company Number: CHPA2011US13529

PATIENT
  Age: 81 Year
  Sex: Male

DRUGS (1)
  1. PREVACID 24 HR [Suspect]
     Indication: ULCER
     Dosage: 15 MG, QD
     Route: 048

REACTIONS (3)
  - LUNG NEOPLASM MALIGNANT [None]
  - INCORRECT DRUG ADMINISTRATION DURATION [None]
  - OFF LABEL USE [None]
